FAERS Safety Report 4712695-3 (Version None)
Quarter: 2005Q3

REPORT INFORMATION
  Report Type: 
  Country: None (occurrence: None)
  Receive Date: 20050701
  Receipt Date: 20040617
  Transmission Date: 20060218
  Serious: Yes (Other)
  Sender: FDA-Public Use
  Company Number: 2004029167

PATIENT
  Age: 30 Year
  Sex: Female

DRUGS (3)
  1. ZOLOFT [Suspect]
     Indication: MAJOR DEPRESSION
     Dosage: 200 MG (100 MG, 1 IN 1 D), ORAL
     Route: 048
     Dates: start: 20040112, end: 20040325
  2. ZOLPIDEM TARTRATE [Suspect]
     Indication: INSOMNIA
     Dosage: 10 MG (10 MG, 1 IN 1 D), ORAL
     Route: 048
     Dates: start: 20040112, end: 20040312
  3. ZOLPIDEM TARTRATE [Suspect]
     Indication: MAJOR DEPRESSION
     Dosage: 10 MG (10 MG, 1 IN 1 D), ORAL
     Route: 048
     Dates: start: 20040112, end: 20040312

REACTIONS (7)
  - AMNESIA [None]
  - CONVULSION [None]
  - DELUSIONAL DISORDER, UNSPECIFIED TYPE [None]
  - FEELING ABNORMAL [None]
  - INSOMNIA [None]
  - RESTLESS LEGS SYNDROME [None]
  - RESTLESSNESS [None]
